FAERS Safety Report 11495749 (Version 2)
Quarter: 2015Q3

REPORT INFORMATION
  Report Type: Spontaneous
  Country: BE (occurrence: BE)
  Receive Date: 20150911
  Receipt Date: 20150928
  Transmission Date: 20151125
  Serious: Yes (Congenital Anomaly, Other)
  Sender: FDA-Public Use
  Company Number: BE-PFIZER INC-2015295030

PATIENT

DRUGS (6)
  1. PHENYTOIN. [Suspect]
     Active Substance: PHENYTOIN
     Indication: SYNCOPE
     Dosage: 200 MG, DAILY
     Route: 064
  2. METHYLPHENOBARBITAL [Concomitant]
     Active Substance: MEPHOBARBITAL
     Indication: SYNCOPE
     Dosage: 100 MG, DAILY
     Route: 064
  3. PHENOBARBITAL. [Concomitant]
     Active Substance: PHENOBARBITAL
     Indication: SYNCOPE
     Dosage: 100 MG, DAILY
     Route: 064
  4. PHENOBARBITAL. [Concomitant]
     Active Substance: PHENOBARBITAL
     Indication: EMOTIONAL DISORDER
  5. METHYLPHENOBARBITAL [Concomitant]
     Active Substance: MEPHOBARBITAL
     Indication: EMOTIONAL DISORDER
  6. PHENYTOIN. [Suspect]
     Active Substance: PHENYTOIN
     Indication: EMOTIONAL DISORDER

REACTIONS (8)
  - Product use issue [Unknown]
  - Premature baby [Unknown]
  - Congenital nose malformation [Unknown]
  - Hypertelorism of orbit [Unknown]
  - Phalangeal agenesis [Unknown]
  - Foetal anticonvulsant syndrome [Unknown]
  - Psychomotor retardation [Unknown]
  - Maternal exposure during pregnancy [Unknown]
